FAERS Safety Report 8925331 (Version 2)
Quarter: 2013Q1

REPORT INFORMATION
  Report Type: Report from Study
  Country: ES (occurrence: ES)
  Receive Date: 20121126
  Receipt Date: 20130211
  Transmission Date: 20140127
  Serious: Yes (Hospitalization)
  Sender: FDA-Public Use
  Company Number: IT-MPIJNJ-2012-07956

PATIENT
  Sex: 0

DRUGS (3)
  1. VELCADE [Suspect]
     Indication: PLASMA CELL MYELOMA
     Dosage: 1.94 MG, UNK
     Route: 042
     Dates: start: 20120703, end: 20121003
  2. BENDAMUSTINE [Suspect]
     Indication: PLASMA CELL MYELOMA
     Dosage: 134 MG, UNK
     Route: 042
     Dates: start: 20120703, end: 20120919
  3. PREDNISONE [Suspect]
     Indication: PLASMA CELL MYELOMA
     Dosage: 100 MG, UNK
     Route: 048
     Dates: start: 20120703, end: 20120915

REACTIONS (4)
  - Air embolism [Recovering/Resolving]
  - Confusional state [Recovered/Resolved]
  - Bradyphrenia [Recovered/Resolved]
  - Vomiting [Recovered/Resolved]
